FAERS Safety Report 6624268-6 (Version None)
Quarter: 2010Q1

REPORT INFORMATION
  Report Type: 
  Country: None (occurrence: None)
  Receive Date: 20100310
  Receipt Date: 20091104
  Transmission Date: 20100710
  Serious: No
  Sender: FDA-Public Use
  Company Number: US-BIOGENIDEC-2009BI035611

PATIENT
  Sex: Female

DRUGS (4)
  1. AVONEX [Suspect]
     Indication: MULTIPLE SCLEROSIS
     Route: 030
     Dates: start: 20090601
  2. NUBAIN [Concomitant]
     Indication: FIBROMYALGIA
     Route: 030
  3. NUBAIN [Concomitant]
     Indication: PAIN
     Route: 030
  4. LYRICA [Concomitant]
     Indication: PARAESTHESIA
     Route: 048

REACTIONS (9)
  - BACK PAIN [None]
  - BALANCE DISORDER [None]
  - FALL [None]
  - GAIT DISTURBANCE [None]
  - HYPERAESTHESIA [None]
  - MOBILITY DECREASED [None]
  - MUSCLE SPASMS [None]
  - PAIN IN EXTREMITY [None]
  - PARAESTHESIA [None]
